FAERS Safety Report 6111253-6 (Version None)
Quarter: 2009Q1

REPORT INFORMATION
  Report Type: 
  Country: None (occurrence: None)
  Receive Date: 20090311
  Receipt Date: 20090302
  Transmission Date: 20090719
  Serious: Yes (Hospitalization, Other)
  Sender: FDA-Public Use
  Company Number: US-AVENTIS-200911664US

PATIENT
  Sex: Male

DRUGS (6)
  1. LANTUS [Suspect]
     Route: 058
     Dates: start: 20060101
  2. OPTICLIK (INSULIN INJECTION PEN) [Suspect]
     Dates: start: 20060101
  3. CARDIOVASCULAR SYSTEM DRUGS [Concomitant]
     Dosage: DOSE: UNK
  4. GLYBURIDE [Concomitant]
     Dosage: DOSE: UNK
  5. GLUCOPHAGE [Concomitant]
     Dosage: DOSE: UNK
  6. LASIX [Concomitant]
     Dosage: DOSE: UNK

REACTIONS (5)
  - BLINDNESS [None]
  - BLOOD GLUCOSE INCREASED [None]
  - CORONARY ARTERY BYPASS [None]
  - GLAUCOMA [None]
  - INTRAOCULAR PRESSURE INCREASED [None]
